FAERS Safety Report 26154094 (Version 2)
Quarter: 2025Q4

REPORT INFORMATION
  Report Type: Spontaneous
  Country: US (occurrence: US)
  Receive Date: 20251215
  Receipt Date: 20251216
  Transmission Date: 20260118
  Serious: Yes (Other)
  Sender: BEIGENE
  Company Number: US-BEIGENE-BGN-2025-008598

PATIENT
  Age: 79 Year

DRUGS (1)
  1. BRUKINSA [Suspect]
     Active Substance: ZANUBRUTINIB
     Indication: Chronic lymphocytic leukaemia
     Dosage: 320 MILLIGRAM, QD
     Route: 061

REACTIONS (6)
  - Pneumonia [Unknown]
  - Oropharyngeal pain [Unknown]
  - Cough [Unknown]
  - White blood cell count abnormal [Unknown]
  - Surgery [Unknown]
  - Impaired healing [Unknown]
